FAERS Safety Report 8251787-1 (Version None)
Quarter: 2012Q2

REPORT INFORMATION
  Report Type: 
  Country: None (occurrence: None)
  Receive Date: 20120402
  Receipt Date: 20120327
  Transmission Date: 20120825
  Serious: Yes (Other)
  Sender: FDA-Public Use
  Company Number: US-PFIZER INC-2012078821

PATIENT
  Sex: Male
  Weight: 98.866 kg

DRUGS (2)
  1. VIAGRA [Suspect]
     Indication: ERECTILE DYSFUNCTION
     Dosage: 50 MG, AS NEEDED
     Route: 048
     Dates: start: 20120101, end: 20120101
  2. COUMADIN [Concomitant]
     Dosage: UNK

REACTIONS (6)
  - EYE HAEMORRHAGE [None]
  - FEELING ABNORMAL [None]
  - DRUG INEFFECTIVE [None]
  - NAUSEA [None]
  - OCULAR HYPERAEMIA [None]
  - HEADACHE [None]
